FAERS Safety Report 19836521 (Version 2)
Quarter: 2021Q3

REPORT INFORMATION
  Report Type: Report from Study
  Country: US (occurrence: US)
  Receive Date: 20210916
  Receipt Date: 20210928
  Transmission Date: 20211014
  Serious: Yes (Other)
  Sender: FDA-Public Use
  Company Number: US-SA-2021SA304024

PATIENT
  Age: 68 Year
  Sex: Male

DRUGS (2)
  1. DUPILUMAB [Suspect]
     Active Substance: DUPILUMAB
     Indication: DERMATITIS ATOPIC
     Dosage: 300 MG, QOW
     Route: 058
     Dates: start: 20200804
  2. DUPILUMAB [Suspect]
     Active Substance: DUPILUMAB
     Dosage: 300 MG, Q3W
     Route: 058

REACTIONS (6)
  - Eyelid disorder [Unknown]
  - Glaucoma [Unknown]
  - Eye disorder [Unknown]
  - Dry eye [Unknown]
  - Contact lens intolerance [Unknown]
  - Off label use [Unknown]

NARRATIVE: CASE EVENT DATE: 202008
